FAERS Safety Report 23692716 (Version 2)
Quarter: 2024Q2

REPORT INFORMATION
  Report Type: Spontaneous
  Country: AU (occurrence: AU)
  Receive Date: 20240401
  Receipt Date: 20240520
  Transmission Date: 20240716
  Serious: Yes (Other)
  Sender: FDA-Public Use
  Company Number: AU-PFIZER INC-PV202400040935

PATIENT
  Age: 59 Year
  Sex: Female
  Weight: 43 kg

DRUGS (5)
  1. TRASTUZUMAB [Suspect]
     Active Substance: TRASTUZUMAB
     Indication: Breast cancer metastatic
  2. PACLITAXEL [Suspect]
     Active Substance: PACLITAXEL
  3. PERTUZUMAB [Suspect]
     Active Substance: PERTUZUMAB
  4. CAPECITABINE [Concomitant]
     Active Substance: CAPECITABINE
  5. TUCATINIB [Concomitant]
     Active Substance: TUCATINIB
     Dosage: DOSE REDUCTION AT 200MG

REACTIONS (3)
  - Pneumonitis [Unknown]
  - Hepatitis [Unknown]
  - Neoplasm progression [Unknown]
